FAERS Safety Report 8601382 (Version 3)
Quarter: 2012Q4

REPORT INFORMATION
  Report Type: 
  Country: NL (occurrence: NL)
  Receive Date: 20120606
  Receipt Date: 20120919
  Transmission Date: 20130627
  Serious: Yes (Hospitalization, Other)
  Sender: FDA-Public Use
  Company Number: NL-TEVA-333931ISR

PATIENT
  Age: 54 Year
  Sex: Female

DRUGS (14)
  1. COPAXONE [Suspect]
     Indication: MULTIPLE SCLEROSIS
     Dosage: 20 Milligram Daily;
     Route: 058
     Dates: start: 20071106
  2. TRAMADOL [Concomitant]
     Dosage: 200 Milligram Daily;
  3. OMEPRAZOLE [Concomitant]
     Dosage: 40 Millicuries Daily;
  4. MELOXICAM [Concomitant]
  5. KETOCONAZOLE 2% [Concomitant]
  6. DORMICUM [Concomitant]
     Dosage: 15 Milligram Daily;
  7. ASCORBIC ACID [Concomitant]
  8. HYDROCHLOROTHIAZIDE [Concomitant]
     Dosage: 25 Milligram Daily;
  9. PARACETAMOL WITH CODEINE PHOSPHATE [Concomitant]
  10. DEPRONAL [Concomitant]
  11. OXAZEPAM [Concomitant]
     Dosage: 30 Milligram Daily;
  12. ACETOSAL CARDIO [Concomitant]
     Dosage: 80 Milligram Daily;
  13. PERSANTIN RETARD [Concomitant]
     Dosage: 400 Milligram Daily;
  14. PARACETAMOL [Concomitant]

REACTIONS (1)
  - Cerebral infarction [Recovered/Resolved with Sequelae]
